FAERS Safety Report 16985006 (Version 2)
Quarter: 2019Q4

REPORT INFORMATION
  Report Type: Spontaneous
  Country: US (occurrence: US)
  Receive Date: 20191101
  Receipt Date: 20191111
  Transmission Date: 20200122
  Serious: Yes (Hospitalization)
  Sender: FDA-Public Use
  Company Number: US-BAYER-2019-197145

PATIENT
  Sex: Male

DRUGS (1)
  1. VITRAKVI [Suspect]
     Active Substance: LAROTRECTINIB
     Indication: THYROID CANCER METASTATIC
     Dosage: 100 MG, BID
     Route: 048

REACTIONS (2)
  - Fall [Recovering/Resolving]
  - Dizziness [Recovering/Resolving]
